FAERS Safety Report 7341795-7 (Version None)
Quarter: 2011Q1

REPORT INFORMATION
  Report Type: 
  Country: None (occurrence: None)
  Receive Date: 20110309
  Receipt Date: 20110304
  Transmission Date: 20110831
  Serious: Yes (Other)
  Sender: FDA-Public Use
  Company Number: CA-PFIZER INC-2011020783

PATIENT
  Age: 43 Year
  Sex: Female

DRUGS (5)
  1. VITAMIN D [Concomitant]
     Dosage: UNK
  2. DILANTIN [Suspect]
     Indication: EPILEPSY
     Dosage: UNK
  3. IRON [Concomitant]
     Dosage: UNK
  4. CLOBAZAM [Concomitant]
     Dosage: UNK
  5. TOPIRAMATE [Concomitant]
     Dosage: UNK

REACTIONS (5)
  - ABDOMINAL DISTENSION [None]
  - CONVULSION [None]
  - DYSPEPSIA [None]
  - ANTICONVULSANT DRUG LEVEL DECREASED [None]
  - CONSTIPATION [None]
